FAERS Safety Report 8902613 (Version 2)
Quarter: 2014Q2

REPORT INFORMATION
  Report Type: Spontaneous
  Country: AU (occurrence: AU)
  Receive Date: 20121112
  Receipt Date: 20140625
  Transmission Date: 20141212
  Serious: Yes (Hospitalization)
  Sender: FDA-Public Use
  Company Number: PHHY2012AU101609

PATIENT
  Age: 52 Year
  Sex: Female
  Weight: 66.7 kg

DRUGS (18)
  1. FLUOROURACIL [Suspect]
     Indication: COLORECTAL CANCER METASTATIC
     Dosage: 1 DF PER 14 DAYS
     Route: 041
     Dates: start: 20120717
  2. CALCIUM FOLINATE [Suspect]
     Indication: COLORECTAL CANCER METASTATIC
     Dosage: 1 DF PER 14 DAYS
     Dates: start: 20120717
  3. OXALIPLATIN [Suspect]
     Indication: COLORECTAL CANCER METASTATIC
     Dosage: 1 DF PER 14 DAYS
     Route: 042
     Dates: start: 20120717
  4. BEVACIZUMAB [Suspect]
     Indication: COLORECTAL CANCER METASTATIC
     Route: 041
     Dates: start: 20120701
  5. PLACEBO [Suspect]
     Indication: COLORECTAL CANCER METASTATIC
     Route: 042
     Dates: start: 20120717
  6. AMPHOTERICIN B [Concomitant]
     Indication: CANDIDA INFECTION
     Route: 048
     Dates: start: 20120816
  7. SODIUM BICARBONATE [Concomitant]
     Indication: MUCOSAL INFLAMMATION
     Route: 048
     Dates: start: 20120822
  8. VITAMIN D [Concomitant]
     Indication: PRODUCT USED FOR UNKNOWN INDICATION
     Route: 048
  9. VITAMIN B [Concomitant]
     Indication: PRODUCT USED FOR UNKNOWN INDICATION
     Route: 048
  10. FISH OIL [Concomitant]
     Indication: PRODUCT USED FOR UNKNOWN INDICATION
     Route: 048
  11. VITAMIN A [Concomitant]
     Dosage: 5000 IU, UNK
     Route: 048
  12. GLUCOSAMINE [Concomitant]
     Route: 048
  13. TROPISETRON [Concomitant]
     Indication: PROPHYLAXIS OF NAUSEA AND VOMITING
     Route: 042
     Dates: start: 20120717
  14. DEXAMETHASONE [Concomitant]
     Indication: PROPHYLAXIS OF NAUSEA AND VOMITING
     Route: 048
     Dates: start: 20120718, end: 20120719
  15. APREPITANT [Concomitant]
     Indication: PROPHYLAXIS OF NAUSEA AND VOMITING
     Route: 048
     Dates: start: 20120731, end: 20120731
  16. OMEPRAZOLE [Concomitant]
     Route: 048
     Dates: start: 20120801, end: 20120802
  17. NYSTATIN [Concomitant]
     Indication: ORAL CANDIDIASIS
     Route: 048
     Dates: start: 20120807
  18. SODIUM CHLORIDE [Concomitant]
     Indication: MUCOSAL INFLAMMATION
     Route: 048
     Dates: start: 20120822

REACTIONS (2)
  - Non-cardiac chest pain [Recovered/Resolved]
  - Chest pain [Recovered/Resolved]
